FAERS Safety Report 10310122 (Version 1)
Quarter: 2014Q3

REPORT INFORMATION
  Report Type: Spontaneous
  Country: US (occurrence: None)
  Receive Date: 20140715
  Receipt Date: 20140715
  Transmission Date: 20150326
  Serious: Yes (Other)
  Sender: FDA-Public Use
  Company Number: None

PATIENT
  Age: 53 Year
  Sex: Female
  Weight: 72.58 kg

DRUGS (1)
  1. ATELVIA [Suspect]
     Active Substance: RISEDRONATE SODIUM
     Indication: OSTEOPENIA
     Dosage: 1 PILL PER WEEK  ONCE A WEEK  TAKEN BY MOUTH
     Route: 048
     Dates: start: 20140711, end: 20140711

REACTIONS (13)
  - Feeling cold [None]
  - Back pain [None]
  - Chest pain [None]
  - Diarrhoea [None]
  - Headache [None]
  - Confusional state [None]
  - Asthenia [None]
  - Pain [None]
  - Painful respiration [None]
  - Tremor [None]
  - Pain in extremity [None]
  - Abdominal pain upper [None]
  - Contusion [None]

NARRATIVE: CASE EVENT DATE: 20140712
